FAERS Safety Report 18850759 (Version 2)
Quarter: 2021Q2

REPORT INFORMATION
  Report Type: Other
  Country: CA (occurrence: CA)
  Receive Date: 20210204
  Receipt Date: 20210620
  Transmission Date: 20210717
  Serious: Yes (Other)
  Sender: FDA-Public Use
  Company Number: CA-CELLTRION INC.-2021CA001004

PATIENT

DRUGS (11)
  1. RITUXIMAB (UNKNOWN) [Suspect]
     Active Substance: RITUXIMAB
     Indication: PROGRESSIVE MULTIPLE SCLEROSIS
     Dosage: 1000 MG
     Route: 042
  2. GABAPENTIN. [Concomitant]
     Active Substance: GABAPENTIN
     Indication: PRODUCT USED FOR UNKNOWN INDICATION
  3. ACETAMINOPHEN. [Concomitant]
     Active Substance: ACETAMINOPHEN
     Indication: PREMEDICATION
     Dosage: 1000 MG
     Route: 048
  4. DIAZEPAM. [Concomitant]
     Active Substance: DIAZEPAM
  5. TRAZODONE [Concomitant]
     Active Substance: TRAZODONE HYDROCHLORIDE
  6. BACLOFEN. [Concomitant]
     Active Substance: BACLOFEN
  7. DIPHENHYDRAMINE HYDROCHLORIDE. [Concomitant]
     Active Substance: DIPHENHYDRAMINE HYDROCHLORIDE
     Indication: PREMEDICATION
     Dosage: 50 MG
     Route: 048
  8. PREDNISONE. [Concomitant]
     Active Substance: PREDNISONE
     Indication: PREMEDICATION
     Dosage: 50 MG
     Route: 048
  9. MITOXANTRONE [Concomitant]
     Active Substance: MITOXANTRONE HYDROCHLORIDE
  10. BOTULINUM TOXIN TYPE A [Suspect]
     Active Substance: BOTULINUM TOXIN TYPE A
     Indication: PRODUCT USED FOR UNKNOWN INDICATION
     Route: 065
  11. IMOVANE [Concomitant]
     Active Substance: ZOPICLONE

REACTIONS (18)
  - Blood pressure systolic decreased [Not Recovered/Not Resolved]
  - Investigation abnormal [Not Recovered/Not Resolved]
  - Cystitis [Not Recovered/Not Resolved]
  - Poor venous access [Not Recovered/Not Resolved]
  - Hypotension [Not Recovered/Not Resolved]
  - Calculus bladder [Not Recovered/Not Resolved]
  - Vasospasm [Not Recovered/Not Resolved]
  - Dysphagia [Not Recovered/Not Resolved]
  - Sleep disorder [Not Recovered/Not Resolved]
  - Weight increased [Not Recovered/Not Resolved]
  - Infection susceptibility increased [Not Recovered/Not Resolved]
  - Muscle spasms [Not Recovered/Not Resolved]
  - Body temperature decreased [Not Recovered/Not Resolved]
  - Calculus urinary [Not Recovered/Not Resolved]
  - Muscle tightness [Not Recovered/Not Resolved]
  - Weight decreased [Not Recovered/Not Resolved]
  - Therapeutic response decreased [Not Recovered/Not Resolved]
  - Off label use [Unknown]
